FAERS Safety Report 7252608-6 (Version None)
Quarter: 2011Q1

REPORT INFORMATION
  Report Type: 
  Country: None (occurrence: None)
  Receive Date: 20110129
  Receipt Date: 20100422
  Transmission Date: 20110831
  Serious: No
  Sender: FDA-Public Use
  Company Number: US-ABBOTT-10P-163-0640207-00

PATIENT
  Sex: Female
  Weight: 93.524 kg

DRUGS (6)
  1. DARVOCET-N 100 [Concomitant]
     Indication: PRODUCT USED FOR UNKNOWN INDICATION
     Dosage: EVERY BEDTIME
  2. HUMIRA [Suspect]
     Dosage: DAY 15
  3. CLARITIN [Concomitant]
     Indication: SEASONAL ALLERGY
  4. HUMIRA [Suspect]
     Indication: CROHN'S DISEASE
     Dosage: DAY 1
     Dates: start: 20100111
  5. MULTIVITAMIN [Concomitant]
     Indication: PRODUCT USED FOR UNKNOWN INDICATION
     Dosage: EVERYDAY
  6. HUMIRA [Suspect]

REACTIONS (1)
  - HYPERSENSITIVITY [None]
